FAERS Safety Report 6005021-3 (Version None)
Quarter: 2008Q4

REPORT INFORMATION
  Report Type: 
  Country: None (occurrence: None)
  Receive Date: 20081216
  Receipt Date: 20080218
  Transmission Date: 20090506
  Serious: No
  Sender: FDA-Public Use
  Company Number: US-BAUSCH-2008BL000737

PATIENT
  Age: 66 Year
  Sex: Male

DRUGS (3)
  1. NEOMYCIN AND POLYMXIN B SULFATES AND HYDROCORTISONE [Suspect]
     Indication: EAR INFECTION
     Route: 001
     Dates: start: 20080208, end: 20080212
  2. MOTRIN [Concomitant]
     Indication: ARTHRALGIA
     Route: 048
  3. CLARITIN /USA/ [Concomitant]
     Indication: HYPERSENSITIVITY
     Route: 048
     Dates: start: 20070101

REACTIONS (3)
  - CONDITION AGGRAVATED [None]
  - EAR DISCOMFORT [None]
  - TINNITUS [None]
